FAERS Safety Report 9504842 (Version 2)
Quarter: 2013Q3

REPORT INFORMATION
  Report Type: Spontaneous
  Country: US (occurrence: US)
  Receive Date: 20130906
  Receipt Date: 20130912
  Transmission Date: 20140515
  Serious: Yes (Other)
  Sender: FDA-Public Use
  Company Number: US-TEVA-430549USA

PATIENT
  Sex: Female

DRUGS (2)
  1. LOSARTAN [Suspect]
     Dosage: 25 MILLIGRAM DAILY;
     Dates: start: 20130909
  2. HYDROCHLOROTHIAZIDE [Suspect]
     Dosage: 25 MILLIGRAM DAILY;

REACTIONS (3)
  - Coeliac disease [Unknown]
  - Ataxia [Unknown]
  - Nystagmus [Unknown]
